FAERS Safety Report 7923129 (Version 4)
Quarter: 2013Q2

REPORT INFORMATION
  Report Type: Spontaneous
  Country: US (occurrence: US)
  Receive Date: 20110429
  Receipt Date: 20130513
  Transmission Date: 20140414
  Serious: Yes (Other)
  Sender: FDA-Public Use
  Company Number: US-ASTRAZENECA-2010SE20695

PATIENT
  Age: 62 Year
  Sex: Female
  Weight: 45.4 kg

DRUGS (26)
  1. NEXIUM [Suspect]
     Indication: GASTROOESOPHAGEAL REFLUX DISEASE
     Route: 048
     Dates: start: 2008
  2. NEXIUM [Suspect]
     Indication: GASTROOESOPHAGEAL REFLUX DISEASE
     Route: 048
  3. ATENOLOL [Suspect]
     Indication: BLOOD PRESSURE ABNORMAL
     Route: 048
     Dates: start: 2003
  4. LISINOPRIL [Suspect]
     Indication: BLOOD PRESSURE ABNORMAL
     Route: 048
     Dates: start: 2009
  5. LIDOCAINE [Suspect]
     Route: 065
  6. ALDACTONE [Concomitant]
     Dates: start: 20130331
  7. PHENOBARBITAL [Concomitant]
     Indication: CONVULSION
     Route: 048
     Dates: start: 1993
  8. PHENOBARBITAL [Concomitant]
     Indication: CONVULSION
     Route: 048
     Dates: start: 1993
  9. XANAX [Concomitant]
     Dosage: PRN
  10. POTASSIUM CHLORIDE [Concomitant]
     Route: 048
  11. TRAZODONE [Concomitant]
     Route: 048
  12. VITAMIN D3 [Concomitant]
     Route: 048
  13. VITAMIN D [Concomitant]
     Route: 048
  14. LOMOTIL [Concomitant]
     Dosage: 2.5-0.025 MG, 1 DF BEFORE MEALS AND AT BEDTIME
     Route: 048
  15. THIAMINE [Concomitant]
     Route: 048
  16. BONIVA [Concomitant]
     Route: 048
  17. VITAMIN B12 [Concomitant]
     Dosage: 1000 MCG/ML, 1 ML ONCE A MONTH
     Route: 030
  18. ACETAMINOPHEN-HYDROCODONE [Concomitant]
     Dosage: 5-500 MG, 1-2 TABLETS EVERY 6 HOURS AS NEEDED
     Route: 048
  19. LOVENOX [Concomitant]
     Dosage: 60 MG/0.6 ML, 0.5 ML TWICE DAILY
     Route: 058
  20. VITAMIN C [Concomitant]
     Route: 048
  21. DOXYCYCLINE [Concomitant]
     Route: 048
  22. FUROSEMIDE [Concomitant]
     Route: 048
  23. MULTIVITAMIN [Concomitant]
     Route: 048
  24. FOLIC ACID [Concomitant]
     Route: 048
  25. ZOFRAN ODT [Concomitant]
     Dosage: 1 DF EVERY 8 HOURS AS NEEDED
     Route: 048
  26. ACIPHEX [Concomitant]
     Route: 048

REACTIONS (83)
  - Hypertension [Unknown]
  - Myocardial infarction [Recovering/Resolving]
  - Fluid retention [Not Recovered/Not Resolved]
  - Supraventricular tachycardia [Unknown]
  - Abdominal hernia [Unknown]
  - Loss of consciousness [Unknown]
  - Humerus fracture [Unknown]
  - Postoperative wound infection [Unknown]
  - Deep vein thrombosis [Unknown]
  - Abortion spontaneous [Unknown]
  - Stillbirth [Unknown]
  - Deep vein thrombosis [Unknown]
  - Inguinal hernia [Unknown]
  - Umbilical hernia [Unknown]
  - Femoral neck fracture [Unknown]
  - Pancreatitis acute [Unknown]
  - Road traffic accident [Unknown]
  - Cervical myelopathy [Unknown]
  - Compression fracture [Unknown]
  - Joint dislocation [Unknown]
  - Cardiac failure congestive [Not Recovered/Not Resolved]
  - Blood magnesium decreased [Recovering/Resolving]
  - Liver function test abnormal [Unknown]
  - Disturbance in attention [Unknown]
  - Gastrooesophageal reflux disease [Recovering/Resolving]
  - Dysphagia [Unknown]
  - Dyspepsia [Unknown]
  - Cervical spinal stenosis [Unknown]
  - Rectocele [Unknown]
  - Osteoarthritis [Unknown]
  - Blood disorder [Unknown]
  - Incisional hernia [Unknown]
  - Long QT syndrome [Unknown]
  - Electrocardiogram abnormal [Unknown]
  - Ventricular extrasystoles [Unknown]
  - Urinary incontinence [Unknown]
  - Hypoaesthesia [Unknown]
  - Cystitis [Unknown]
  - Cellulitis staphylococcal [Unknown]
  - Prinzmetal angina [Unknown]
  - Neck pain [Unknown]
  - Non-cardiac chest pain [Unknown]
  - Bronchitis [Unknown]
  - Weight decreased [Unknown]
  - Neuralgia [Unknown]
  - Myofascial pain syndrome [Unknown]
  - Spinal osteoarthritis [Unknown]
  - Mental disorder [Unknown]
  - Spinal osteoarthritis [Unknown]
  - Fall [Unknown]
  - Staphylococcal infection [Unknown]
  - Malnutrition [Unknown]
  - Ehlers-Danlos syndrome [Unknown]
  - Raynaud^s phenomenon [Unknown]
  - Antiphospholipid syndrome [Unknown]
  - Chest pain [Unknown]
  - Anaemia [Unknown]
  - Blood alkaline phosphatase increased [Unknown]
  - Haematochezia [Unknown]
  - Chills [Unknown]
  - Anxiety [Unknown]
  - Mitral valve prolapse [Unknown]
  - Drug abuse [Unknown]
  - Alcoholism [Unknown]
  - Hyperlipidaemia [Unknown]
  - Essential hypertension [Unknown]
  - Bipolar I disorder [Unknown]
  - Borderline glaucoma [Unknown]
  - Hyperparathyroidism [Unknown]
  - Jaw fracture [Unknown]
  - Cardiomegaly [Unknown]
  - Osteoporosis [Unknown]
  - Urticaria [Unknown]
  - Oedema peripheral [Unknown]
  - Leukopenia [Unknown]
  - Arthralgia [Unknown]
  - Headache [Unknown]
  - Nausea [Unknown]
  - Vomiting [Unknown]
  - Drug hypersensitivity [Unknown]
  - Off label use [Unknown]
  - Intentional drug misuse [Unknown]
  - Drug dose omission [Unknown]
